FAERS Safety Report 8374549-3 (Version None)
Quarter: 2012Q2

REPORT INFORMATION
  Report Type: 
  Country: None (occurrence: None)
  Receive Date: 20120521
  Receipt Date: 20120515
  Transmission Date: 20120825
  Serious: No
  Sender: FDA-Public Use
  Company Number: US-PFIZER INC-2012118584

PATIENT
  Sex: Male
  Weight: 90.703 kg

DRUGS (3)
  1. APRISO [Concomitant]
     Indication: COLITIS ULCERATIVE
     Dosage: 1.125 G (THREE CAPSULES OF 0.375GM), DAILY
  2. LISINOPRIL [Concomitant]
     Indication: HYPERTENSION
     Dosage: UNK, DAILY
  3. VIAGRA [Suspect]
     Indication: ERECTILE DYSFUNCTION
     Dosage: SPLITTING 100MG TABLET INTO A QUARTER, TWO TO THREE TIMES A WEEK
     Route: 048

REACTIONS (2)
  - NASAL CONGESTION [None]
  - ERYTHEMA [None]
